FAERS Safety Report 4808447-6 (Version None)
Quarter: 2005Q4

REPORT INFORMATION
  Report Type: 
  Country: None (occurrence: None)
  Receive Date: 20051025
  Receipt Date: 20051010
  Transmission Date: 20060501
  Serious: Yes (Other)
  Sender: FDA-Public Use
  Company Number: AT-AMGEN-UK153600

PATIENT
  Sex: Female

DRUGS (8)
  1. PALIFERMIN [Suspect]
     Indication: MUCOSAL INFLAMMATION
     Route: 042
     Dates: start: 20050930, end: 20051008
  2. AMPHO MORONAL [Concomitant]
     Route: 048
     Dates: start: 20051004
  3. RIOPAN [Concomitant]
     Route: 048
     Dates: start: 20051004
  4. SODIUM CHLORIDE [Concomitant]
     Route: 042
     Dates: start: 20051007
  5. PASPERTIN [Concomitant]
     Route: 042
     Dates: start: 20051007
  6. PANTOPRAZOLE SODIUM [Concomitant]
     Route: 065
     Dates: start: 20051005
  7. KYTRIL [Concomitant]
     Route: 042
     Dates: start: 20051005
  8. ACYCLOVIR [Concomitant]
     Route: 042

REACTIONS (6)
  - ERYTHEMA [None]
  - FACE OEDEMA [None]
  - OEDEMA MOUTH [None]
  - PERIORBITAL OEDEMA [None]
  - TONGUE OEDEMA [None]
  - VAGINAL OEDEMA [None]
